FAERS Safety Report 6865215-1 (Version None)
Quarter: 2010Q3

REPORT INFORMATION
  Report Type: 
  Country: None (occurrence: None)
  Receive Date: 20100720
  Receipt Date: 20100712
  Transmission Date: 20110219
  Serious: Yes (Hospitalization)
  Sender: FDA-Public Use
  Company Number: 2009AL007810

PATIENT
  Age: 40 Year
  Sex: Female

DRUGS (3)
  1. VENLAFAXINE HYDROCHLORIDE [Suspect]
     Indication: DEPRESSION
     Dosage: 75 MG;QD;PO
     Route: 048
     Dates: start: 20091119, end: 20091127
  2. CIPRALEX [Concomitant]
  3. MERTAZAPINE [Concomitant]

REACTIONS (11)
  - ABDOMINAL PAIN [None]
  - BLOOD POTASSIUM DECREASED [None]
  - DECREASED APPETITE [None]
  - DISORIENTATION [None]
  - DIZZINESS [None]
  - FATIGUE [None]
  - HYPERHIDROSIS [None]
  - HYPERVENTILATION [None]
  - SLEEP DISORDER [None]
  - SWOLLEN TONGUE [None]
  - SYNCOPE [None]
